FAERS Safety Report 16835789 (Version 1)
Quarter: 2019Q3

REPORT INFORMATION
  Report Type: Report from Study
  Country: US (occurrence: US)
  Receive Date: 20190920
  Receipt Date: 20190920
  Transmission Date: 20191005
  Serious: Yes (Other)
  Sender: FDA-Public Use
  Company Number: US-GLAXOSMITHKLINE-2019-TSO02625-US

PATIENT
  Sex: Female
  Weight: 42 kg

DRUGS (1)
  1. NIRAPARIB [Suspect]
     Active Substance: NIRAPARIB
     Indication: OVARIAN CANCER
     Dosage: 300 MG, QPM WITH FOOD
     Route: 048
     Dates: start: 20190709

REACTIONS (4)
  - Blood count abnormal [Unknown]
  - Decreased appetite [Unknown]
  - Polyuria [Not Recovered/Not Resolved]
  - Nausea [Unknown]
